FAERS Safety Report 15764138 (Version 1)
Quarter: 2018Q4

REPORT INFORMATION
  Report Type: Spontaneous
  Country: GB (occurrence: GB)
  Receive Date: 20181227
  Receipt Date: 20181227
  Transmission Date: 20190205
  Serious: Yes (Disabling)
  Sender: FDA-Public Use
  Company Number: GB-ASTRAZENECA-2018SF68379

PATIENT
  Age: 71 Year
  Sex: Female
  Weight: 75.5 kg

DRUGS (4)
  1. TICAGRELOR. [Suspect]
     Active Substance: TICAGRELOR
     Indication: ACUTE CORONARY SYNDROME
     Route: 048
     Dates: start: 20180612, end: 20181127
  2. ATORVASTATIN [Concomitant]
     Active Substance: ATORVASTATIN
  3. CANDESARTAN. [Concomitant]
     Active Substance: CANDESARTAN
     Dates: start: 201809
  4. BISOPROLOL [Concomitant]
     Active Substance: BISOPROLOL
     Dosage: STOPPED BUT DIDN^T HELP- SO WAS RESUMED A SMALLER DOSE

REACTIONS (2)
  - Oxygen saturation decreased [Recovered/Resolved]
  - Dyspnoea exertional [Recovered/Resolved]

NARRATIVE: CASE EVENT DATE: 20181030
